FAERS Safety Report 6160846-9 (Version None)
Quarter: 2009Q2

REPORT INFORMATION
  Report Type: 
  Country: None (occurrence: None)
  Receive Date: 20090420
  Receipt Date: 20090415
  Transmission Date: 20091009
  Serious: Yes (Other)
  Sender: FDA-Public Use
  Company Number: AU-ROCHE-627696

PATIENT
  Sex: Male
  Weight: 74 kg

DRUGS (5)
  1. CLONAZEPAM [Suspect]
     Indication: DRUG USE FOR UNKNOWN INDICATION
     Dosage: 1 TIME
     Route: 030
     Dates: start: 20080710
  2. OLANZAPINE [Suspect]
     Indication: DRUG USE FOR UNKNOWN INDICATION
     Dosage: 1 TIME
     Route: 030
     Dates: start: 20080710
  3. ZUCLOPENTHIXOL ACETATE [Suspect]
     Indication: DRUG USE FOR UNKNOWN INDICATION
     Dosage: 1 TIME
     Route: 030
     Dates: start: 20080710
  4. RISPERIDONE [Concomitant]
  5. SERTRALINE HYDROCHLORIDE [Concomitant]

REACTIONS (3)
  - EYELID PTOSIS [None]
  - GAIT DISTURBANCE [None]
  - MYASTHENIA GRAVIS [None]
